FAERS Safety Report 6652026-5 (Version None)
Quarter: 2010Q1

REPORT INFORMATION
  Report Type: 
  Country: None (occurrence: None)
  Receive Date: 20100325
  Receipt Date: 20100319
  Transmission Date: 20100710
  Serious: Yes (Congenital Anomaly, Other)
  Sender: FDA-Public Use
  Company Number: GB-WYE-G05791210

PATIENT
  Sex: Male

DRUGS (3)
  1. VENLAFAXINE HYDROCHLORIDE [Suspect]
     Indication: BIPOLAR DISORDER
     Dosage: 225 MG (FREQUENCY UNKNOWN)
     Route: 064
  2. CODEINE SULFATE [Concomitant]
     Indication: PAIN
     Dosage: 15 MG (FREQUENCY UNKNOWN)
     Route: 064
  3. LITHIUM [Suspect]
     Indication: BIPOLAR DISORDER
     Route: 064

REACTIONS (4)
  - DRUG EXPOSURE DURING PREGNANCY [None]
  - HYPOSPADIAS [None]
  - MICROGNATHIA [None]
  - PREMATURE BABY [None]
